FAERS Safety Report 21798395 (Version 1)
Quarter: 2022Q4

REPORT INFORMATION
  Report Type: Report from Study
  Country: US (occurrence: US)
  Receive Date: 20221230
  Receipt Date: 20221230
  Transmission Date: 20230113
  Serious: Yes (Other)
  Sender: FDA-Public Use
  Company Number: US-ABBVIE-4251473

PATIENT
  Sex: Female

DRUGS (1)
  1. HUMIRA [Suspect]
     Active Substance: ADALIMUMAB
     Indication: Rheumatoid arthritis
     Dosage: EVENT ONSET FOR MUSCLE TENSION SHOULD BE AT LEAST 2022.
     Route: 058
     Dates: start: 20220629

REACTIONS (1)
  - Nerve compression [Recovering/Resolving]
